FAERS Safety Report 22392934 (Version 1)
Quarter: 2023Q2

REPORT INFORMATION
  Report Type: Spontaneous
  Country: IN (occurrence: IN)
  Receive Date: 20230601
  Receipt Date: 20230601
  Transmission Date: 20230721
  Serious: Yes (Death, Life-Threatening, Hospitalization, Other)
  Sender: FDA-Public Use
  Company Number: IN-MLMSERVICE-20230519-4287119-1

PATIENT
  Age: 4 Year
  Sex: Female

DRUGS (2)
  1. CARBOPLATIN [Suspect]
     Active Substance: CARBOPLATIN
     Indication: Squamous cell carcinoma of skin
     Dosage: 3 WEEKLY, AREA UNDER CURVE IS 6
  2. PACLITAXEL [Suspect]
     Active Substance: PACLITAXEL
     Indication: Squamous cell carcinoma of skin
     Dosage: 3 WEEKLY

REACTIONS (7)
  - Haemodynamic instability [Fatal]
  - Depressed level of consciousness [Fatal]
  - Acute hepatic failure [Fatal]
  - Metabolic acidosis [Fatal]
  - Dystonia [Fatal]
  - Acute kidney injury [Fatal]
  - Hepatotoxicity [Fatal]
